FAERS Safety Report 24346880 (Version 3)
Quarter: 2025Q1

REPORT INFORMATION
  Report Type: Report from Study
  Country: GB (occurrence: GB)
  Receive Date: 20240921
  Receipt Date: 20250113
  Transmission Date: 20250409
  Serious: Yes (Other)
  Sender: UCB
  Company Number: GB-UCBSA-2024046294

PATIENT
  Sex: Female

DRUGS (2)
  1. BIMEKIZUMAB [Suspect]
     Active Substance: BIMEKIZUMAB
     Indication: Psoriasis
     Route: 058
     Dates: start: 202212
  2. BIMEKIZUMAB [Suspect]
     Active Substance: BIMEKIZUMAB
     Dates: start: 202407, end: 202501

REACTIONS (7)
  - Thrombosis [Unknown]
  - Oral candidiasis [Unknown]
  - Malaise [Unknown]
  - Tinea pedis [Unknown]
  - Abdominal pain upper [Unknown]
  - Migraine [Unknown]
  - Bladder irritation [Unknown]

NARRATIVE: CASE EVENT DATE: 20240101
